FAERS Safety Report 19081038 (Version 1)
Quarter: 2021Q2

REPORT INFORMATION
  Report Type: Report from Study
  Country: None (occurrence: TW)
  Receive Date: 20210401
  Receipt Date: 20210401
  Transmission Date: 20210717
  Serious: Yes (Death)
  Sender: FDA-Public Use
  Company Number: TW-ABBVIE-21K-153-3838338-00

PATIENT
  Age: 78 Year
  Sex: Female
  Weight: 42.7 kg

DRUGS (3)
  1. HUMIRA [Suspect]
     Active Substance: ADALIMUMAB
     Indication: RHEUMATOID ARTHRITIS
     Route: 058
     Dates: start: 20180104, end: 20210204
  2. HUMIRA [Suspect]
     Active Substance: ADALIMUMAB
     Indication: RHEUMATOID ARTHRITIS
     Route: 058
     Dates: start: 20150226, end: 20171221
  3. LEFLUNOMIDE. [Concomitant]
     Active Substance: LEFLUNOMIDE
     Indication: RHEUMATOID ARTHRITIS
     Route: 048
     Dates: start: 20140814, end: 20210218

REACTIONS (5)
  - Wheelchair user [Unknown]
  - Dyspnoea [Unknown]
  - Unevaluable event [Unknown]
  - Sputum increased [Fatal]
  - Bedridden [Fatal]

NARRATIVE: CASE EVENT DATE: 20210218
